FAERS Safety Report 25192179 (Version 1)
Quarter: 2025Q2

REPORT INFORMATION
  Report Type: Spontaneous
  Country: US (occurrence: None)
  Receive Date: 20250413
  Receipt Date: 20250413
  Transmission Date: 20250716
  Serious: No
  Sender: FDA-CTU
  Company Number: None

PATIENT
  Age: 36 Year
  Sex: Female
  Weight: 85.05 kg

DRUGS (3)
  1. NIACINAMIDE\TIRZEPATIDE [Suspect]
     Active Substance: NIACINAMIDE\TIRZEPATIDE
     Dates: start: 20241229, end: 20250406
  2. VITAMINS [Concomitant]
     Active Substance: VITAMINS
  3. MIRALAX [Concomitant]
     Active Substance: POLYETHYLENE GLYCOL 3350

REACTIONS (3)
  - Recalled product [None]
  - Recalled product administered [None]
  - Rash [None]

NARRATIVE: CASE EVENT DATE: 20250202
